FAERS Safety Report 17554805 (Version 1)
Quarter: 2020Q1

REPORT INFORMATION
  Report Type: Spontaneous
  Country: US (occurrence: US)
  Receive Date: 20200318
  Receipt Date: 20200318
  Transmission Date: 20200409
  Serious: Yes (Other)
  Sender: FDA-Public Use
  Company Number: US-AXELLIA-003024

PATIENT
  Age: 31 Year
  Sex: Male

DRUGS (1)
  1. COLISTIN [Suspect]
     Active Substance: COLISTIN
     Indication: ACINETOBACTER BACTERAEMIA
     Route: 042

REACTIONS (1)
  - Acute kidney injury [Recovered/Resolved]
